FAERS Safety Report 7416076-3 (Version None)
Quarter: 2011Q2

REPORT INFORMATION
  Report Type: 
  Country: None (occurrence: None)
  Receive Date: 20110414
  Receipt Date: 20110407
  Transmission Date: 20111010
  Serious: Yes (Disabling)
  Sender: FDA-Public Use
  Company Number: FR-ROCHE-758598

PATIENT
  Sex: Female
  Weight: 60 kg

DRUGS (4)
  1. AVLOCARDYL [Concomitant]
  2. ZYMAD [Concomitant]
     Indication: OSTEOPENIA
  3. BONIVA [Suspect]
     Indication: OSTEOPENIA
     Route: 065
     Dates: start: 20100601, end: 20101201
  4. AVLOCARDYL [Concomitant]
     Indication: TREMOR

REACTIONS (5)
  - MUSCULOSKELETAL STIFFNESS [None]
  - BONE PAIN [None]
  - TREMOR [None]
  - ARTHRALGIA [None]
  - MYALGIA [None]
